FAERS Safety Report 7463910-7 (Version None)
Quarter: 2011Q2

REPORT INFORMATION
  Report Type: 
  Country: None (occurrence: None)
  Receive Date: 20110506
  Receipt Date: 20110502
  Transmission Date: 20111010
  Serious: Yes (Hospitalization)
  Sender: FDA-Public Use
  Company Number: US-SANOFI-AVENTIS-2011SA027313

PATIENT
  Age: 66 Year
  Sex: Female

DRUGS (4)
  1. AMARYL [Suspect]
     Indication: INSULIN-REQUIRING TYPE 2 DIABETES MELLITUS
     Route: 048
  2. ALL OTHER THERAPEUTIC PRODUCTS [Concomitant]
     Indication: BLOOD PRESSURE
  3. METFORMIN [Concomitant]
  4. ATENOLOL [Concomitant]
     Indication: BLOOD PRESSURE

REACTIONS (2)
  - BLOOD GLUCOSE INCREASED [None]
  - STENT PLACEMENT [None]
